FAERS Safety Report 8919064 (Version 2)
Quarter: 2013Q1

REPORT INFORMATION
  Report Type: Spontaneous
  Country: JP (occurrence: JP)
  Receive Date: 20121121
  Receipt Date: 20130204
  Transmission Date: 20140127
  Serious: Yes (Other)
  Sender: FDA-Public Use
  Company Number: JP-ASTRAZENECA-2012SE86667

PATIENT
  Age: 69 Year
  Sex: Male

DRUGS (3)
  1. XYLOCAINE INJECTION [Suspect]
     Route: 065
     Dates: start: 201102, end: 201102
  2. LOCAL ANESTHETICS [Concomitant]
     Route: 065
  3. ANTICOAGULANTS [Concomitant]
     Route: 065

REACTIONS (2)
  - Pharyngeal oedema [Unknown]
  - Laryngeal oedema [Unknown]
